FAERS Safety Report 10696321 (Version 3)
Quarter: 2015Q1

REPORT INFORMATION
  Report Type: Spontaneous
  Country: US (occurrence: US)
  Receive Date: 20150107
  Receipt Date: 20150120
  Transmission Date: 20150721
  Serious: Yes (Death, Other)
  Sender: FDA-Public Use
  Company Number: US-GILEAD-2015-0130494

PATIENT
  Age: 43 Year
  Sex: Female

DRUGS (5)
  1. LETAIRIS [Suspect]
     Active Substance: AMBRISENTAN
     Indication: PRODUCT USED FOR UNKNOWN INDICATION
     Dosage: 5 MG, UNK
     Route: 065
     Dates: start: 20141229
  2. LETAIRIS [Suspect]
     Active Substance: AMBRISENTAN
     Dates: start: 20141230
  3. REVATIO [Concomitant]
     Active Substance: SILDENAFIL CITRATE
  4. FLOLAN [Concomitant]
     Active Substance: EPOPROSTENOL SODIUM
  5. OXYGEN. [Concomitant]
     Active Substance: OXYGEN

REACTIONS (3)
  - Malaise [Unknown]
  - Death [Fatal]
  - Oxygen consumption [Unknown]
